FAERS Safety Report 10089692 (Version 1)
Quarter: 2014Q2

REPORT INFORMATION
  Report Type: Spontaneous
  Country: PT (occurrence: PT)
  Receive Date: 20140421
  Receipt Date: 20140421
  Transmission Date: 20141212
  Serious: Yes (Hospitalization, Other)
  Sender: FDA-Public Use
  Company Number: PT-ACTAVIS-2014-07429

PATIENT
  Age: 57 Year
  Sex: Female

DRUGS (1)
  1. PHENYTOIN (AMALLC) [Suspect]
     Indication: CONVULSION PROPHYLAXIS
     Dosage: 100 MG, TID
     Route: 065

REACTIONS (1)
  - Toxic epidermal necrolysis [Recovered/Resolved with Sequelae]
